FAERS Safety Report 11106009 (Version 1)
Quarter: 2015Q2

REPORT INFORMATION
  Report Type: Report from Study
  Country: US (occurrence: US)
  Receive Date: 20150512
  Receipt Date: 20150512
  Transmission Date: 20150821
  Serious: Yes (Life-Threatening, Other)
  Sender: FDA-Public Use
  Company Number: US-ROCHE-1575011

PATIENT

DRUGS (1)
  1. BEVACIZUMAB [Suspect]
     Active Substance: BEVACIZUMAB
     Indication: RENAL CELL CARCINOMA
     Route: 065

REACTIONS (7)
  - Hypotension [Unknown]
  - International normalised ratio abnormal [Unknown]
  - Lymphopenia [Unknown]
  - Ventricular arrhythmia [Unknown]
  - Proteinuria [Unknown]
  - Infection [Unknown]
  - Syncope [Unknown]
